FAERS Safety Report 7557474-7 (Version None)
Quarter: 2011Q2

REPORT INFORMATION
  Report Type: 
  Country: None (occurrence: None)
  Receive Date: 20110620
  Receipt Date: 20110610
  Transmission Date: 20111010
  Serious: Yes (Hospitalization, Other)
  Sender: FDA-Public Use
  Company Number: JP-SANOFI-AVENTIS-2010SA014626

PATIENT
  Age: 74 Year
  Sex: Female
  Weight: 48 kg

DRUGS (30)
  1. TS-1 [Suspect]
     Route: 048
     Dates: start: 20100317, end: 20100706
  2. CANDESARTAN CILEXETIL [Concomitant]
     Indication: HYPERTENSION
     Route: 048
  3. AMLODIPINE [Concomitant]
     Indication: HYPERTENSION
     Route: 048
  4. BLOOD SUBSTITUTES AND PLASMA PROTEIN FRACTION [Concomitant]
     Dosage: 700ML, 2L, 2.5L, 1L
     Route: 041
     Dates: start: 20100305, end: 20100310
  5. BIFIDOBACTERIUM BIFIDUM/ENTEROCOCCUS FAECIUM [Concomitant]
     Route: 048
     Dates: start: 20100305
  6. OLMESARTAN MEDOXOMIL [Concomitant]
     Indication: HYPERTENSION
     Route: 048
     Dates: start: 20100512
  7. OXALIPLATIN [Suspect]
     Route: 041
     Dates: start: 20100729, end: 20100729
  8. LEUCOVORIN CALCIUM [Suspect]
     Indication: LARGE INTESTINE CARCINOMA
     Route: 048
     Dates: start: 20100205, end: 20100212
  9. LEUCOVORIN CALCIUM [Suspect]
     Route: 048
     Dates: start: 20100729, end: 20100805
  10. FLUNITRAZEPAM [Concomitant]
     Indication: INSOMNIA
     Route: 048
     Dates: start: 20100909
  11. LYRICA [Concomitant]
     Indication: NEUROPATHY PERIPHERAL
     Route: 048
     Dates: start: 20101227
  12. CLARITIN [Concomitant]
     Indication: RHINITIS ALLERGIC
     Route: 048
     Dates: start: 20110219
  13. BEVACIZUMAB [Suspect]
     Indication: COLON CANCER
     Route: 041
     Dates: start: 20100205, end: 20100812
  14. DIFLUPREDNATE [Concomitant]
     Route: 061
     Dates: start: 20101213
  15. TS-1 [Suspect]
     Route: 048
     Dates: start: 20100219, end: 20100226
  16. BEVACIZUMAB [Suspect]
     Route: 065
     Dates: start: 20100826
  17. RABEPRAZOLE SODIUM [Concomitant]
     Indication: PROPHYLAXIS AGAINST GASTROINTESTINAL ULCER
     Route: 048
     Dates: start: 20100205
  18. ZOLPIDEM [Concomitant]
     Indication: INSOMNIA
     Route: 048
     Dates: start: 20100226
  19. OXALIPLATIN [Suspect]
     Route: 041
     Dates: start: 20100812, end: 20100812
  20. LEUCOVORIN CALCIUM [Suspect]
     Route: 048
     Dates: start: 20100317, end: 20100706
  21. LEUCOVORIN CALCIUM [Suspect]
     Route: 048
     Dates: start: 20100826
  22. LEUCOVORIN CALCIUM [Suspect]
     Route: 048
     Dates: start: 20100219, end: 20100226
  23. LEVOFLOXACIN [Concomitant]
     Indication: LACRIMATION INCREASED
     Route: 031
     Dates: start: 20110113
  24. TS-1 [Suspect]
     Indication: COLON CANCER
     Route: 048
     Dates: start: 20100205, end: 20100212
  25. TS-1 [Suspect]
     Route: 048
     Dates: start: 20100729, end: 20100805
  26. TS-1 [Suspect]
     Route: 065
     Dates: start: 20100826
  27. OXALIPLATIN [Suspect]
     Indication: COLON CANCER
     Route: 041
     Dates: start: 20100205, end: 20100629
  28. TS-1 [Suspect]
     Route: 048
     Dates: start: 20100812, end: 20100819
  29. LEUCOVORIN CALCIUM [Suspect]
     Route: 048
     Dates: start: 20100812, end: 20100819
  30. HEPARIN [Concomitant]
     Route: 061
     Dates: start: 20101213

REACTIONS (3)
  - FEMORAL NECK FRACTURE [None]
  - ENTERITIS [None]
  - PERIPHERAL SENSORY NEUROPATHY [None]
